FAERS Safety Report 7645959-4 (Version None)
Quarter: 2011Q3

REPORT INFORMATION
  Report Type: 
  Country: None (occurrence: None)
  Receive Date: 20110729
  Receipt Date: 20110722
  Transmission Date: 20111222
  Serious: Yes (Other)
  Sender: FDA-Public Use
  Company Number: US-RB-030689-11

PATIENT
  Sex: Female

DRUGS (4)
  1. SUBOXONE [Suspect]
     Indication: DRUG DEPENDENCE
     Route: 060
  2. SUBOXONE [Suspect]
     Route: 060
     Dates: start: 20080101
  3. SUBOXONE [Suspect]
     Route: 060
  4. COCAINE [Suspect]
     Indication: PRODUCT USED FOR UNKNOWN INDICATION
     Dosage: DOSAGE INFORMATION UNKNOWN
     Route: 065

REACTIONS (3)
  - ABORTION INDUCED [None]
  - MATERNAL EXPOSURE DURING PREGNANCY [None]
  - DRUG ABUSE [None]
